FAERS Safety Report 17655680 (Version 2)
Quarter: 2020Q3

REPORT INFORMATION
  Report Type: Spontaneous
  Country: US (occurrence: US)
  Receive Date: 20200410
  Receipt Date: 20200713
  Transmission Date: 20201102
  Serious: Yes (Other)
  Sender: FDA-Public Use
  Company Number: US-ASTRAZENECA-2018SF48015

PATIENT
  Age: 898 Month
  Sex: Male
  Weight: 77.1 kg

DRUGS (35)
  1. OMEPRAZOLE. [Suspect]
     Active Substance: OMEPRAZOLE
     Indication: GALLBLADDER DISORDER
     Dosage: GENERIC
     Route: 065
  2. PREDNISONE. [Concomitant]
     Active Substance: PREDNISONE
     Dates: start: 2018
  3. VITAMIN C [Concomitant]
     Active Substance: ASCORBIC ACID
     Indication: ENERGY INCREASED
     Dates: start: 2014, end: 2016
  4. FERREX [Concomitant]
     Active Substance: FERRIC POLYSACCHARIDE COMPLEX
     Dates: start: 2016
  5. OMEPRAZOLE. [Suspect]
     Active Substance: OMEPRAZOLE
     Indication: GALLBLADDER DISORDER
     Dosage: GENERIC
     Route: 065
     Dates: start: 2011
  6. FERREX [Concomitant]
     Active Substance: FERRIC POLYSACCHARIDE COMPLEX
     Dates: start: 2010
  7. IRON [Concomitant]
     Active Substance: IRON
     Indication: ENERGY INCREASED
     Dates: start: 2019
  8. MIDRIN [Concomitant]
     Active Substance: ACETAMINOPHEN\DICHLORALPHENAZONE\ISOMETHEPTENE
  9. PLAVIX [Concomitant]
     Active Substance: CLOPIDOGREL BISULFATE
     Indication: COAGULATION FACTOR
     Dates: start: 2010, end: 2014
  10. COQ10 [Concomitant]
     Active Substance: UBIDECARENONE
     Indication: ENERGY INCREASED
     Dates: start: 2009, end: 2015
  11. CIPROFLOXACIN. [Concomitant]
     Active Substance: CIPROFLOXACIN
     Indication: INFECTION
     Dates: start: 2018
  12. ZITHROMAX [Concomitant]
     Active Substance: AZITHROMYCIN DIHYDRATE
     Indication: INFECTION
     Dates: start: 2010
  13. QUININE [Concomitant]
     Active Substance: QUININE
     Indication: MALARIA PROPHYLAXIS
     Dates: start: 2006, end: 2007
  14. ASPIRIN. [Concomitant]
     Active Substance: ASPIRIN
     Indication: COAGULATION FACTOR
     Dates: start: 2000
  15. FLAXSEED [Concomitant]
     Active Substance: FLAX SEED
     Indication: ENERGY INCREASED
     Dates: start: 2009
  16. MULTI?VITAMIN [Concomitant]
     Active Substance: .ALPHA.-TOCOPHEROL ACETATE, DL-\ASCORBIC ACID\CYANOCOBALAMIN\FLUORIDE ION\FOLIC ACID\NIACIN\PYRIDOXINE\RIBOFLAVIN\THIAMINE\VITAMIN A\VITAMIN D
     Indication: ENERGY INCREASED
     Dates: start: 2010
  17. NEXIUM [Suspect]
     Active Substance: ESOMEPRAZOLE MAGNESIUM
     Indication: GALLBLADDER DISORDER
     Route: 048
     Dates: start: 20100928
  18. DEXILANT [Suspect]
     Active Substance: DEXLANSOPRAZOLE
     Indication: GALLBLADDER DISORDER
     Dosage: FOR VARIOUS DATES AND YEARS
     Route: 065
     Dates: start: 2010, end: 2016
  19. DEXILANT [Suspect]
     Active Substance: DEXLANSOPRAZOLE
     Indication: GALLBLADDER DISORDER
     Route: 048
     Dates: start: 20100920, end: 20101102
  20. TURMERIC [Concomitant]
     Active Substance: HERBALS\TURMERIC
     Indication: ENERGY INCREASED
     Dates: start: 2019
  21. PEPCID [Concomitant]
     Active Substance: FAMOTIDINE
     Dates: start: 2010
  22. DEXILANT [Suspect]
     Active Substance: DEXLANSOPRAZOLE
     Indication: GALLBLADDER DISORDER
     Route: 065
     Dates: start: 2010, end: 2016
  23. AZITHROMYCIN ANHYDROUS. [Concomitant]
     Active Substance: AZITHROMYCIN ANHYDROUS
     Indication: INFECTION
  24. COZAAR [Concomitant]
     Active Substance: LOSARTAN POTASSIUM
     Indication: INFECTION
     Dates: start: 2017, end: 2019
  25. AMLODIPINE [Concomitant]
     Active Substance: AMLODIPINE BESYLATE
     Indication: BLOOD PRESSURE ABNORMAL
     Dates: start: 2017, end: 2019
  26. CRANBERRY CAPS [Concomitant]
     Indication: ENERGY INCREASED
     Dates: start: 2017
  27. VITAMIN D [Concomitant]
     Active Substance: VITAMIN D NOS
     Indication: ENERGY INCREASED
     Dates: start: 2014, end: 2016
  28. PEPCID [Concomitant]
     Active Substance: FAMOTIDINE
     Dates: start: 2016
  29. NEXIUM [Suspect]
     Active Substance: ESOMEPRAZOLE MAGNESIUM
     Indication: GALLBLADDER DISORDER
     Route: 048
     Dates: start: 2010
  30. CLOPIDOGREL [Concomitant]
     Active Substance: CLOPIDOGREL BISULFATE
     Indication: COAGULATION FACTOR
  31. LOSARTAN. [Concomitant]
     Active Substance: LOSARTAN
     Indication: BLOOD PRESSURE ABNORMAL
     Dates: start: 2017, end: 2019
  32. LEVOFLOXACIN. [Concomitant]
     Active Substance: LEVOFLOXACIN
     Indication: INFECTION
     Dates: start: 2017
  33. ZITHROMAX [Concomitant]
     Active Substance: AZITHROMYCIN DIHYDRATE
     Indication: INFECTION
     Dates: start: 2018
  34. RENA?VITE [Concomitant]
     Active Substance: ASCORBIC ACID\BIOTIN\CALCIUM PANTOTHENATE\CYANOCOBALAMIN\FOLIC ACID\NIACINAMIDE\PYRIDOXINE HYDROCHLORIDE\RIBOFLAVIN\THIAMINE MONONITRATE
     Indication: ENERGY INCREASED
     Dates: start: 2019
  35. NEXIUM [Suspect]
     Active Substance: ESOMEPRAZOLE MAGNESIUM
     Indication: GALLBLADDER DISORDER
     Dosage: FOR VARIOUS DATES AND YEARS
     Route: 048
     Dates: start: 2010, end: 2016

REACTIONS (4)
  - Renal failure [Unknown]
  - Nephrogenic anaemia [Unknown]
  - Rebound acid hypersecretion [Unknown]
  - Chronic kidney disease [Not Recovered/Not Resolved]

NARRATIVE: CASE EVENT DATE: 201306
